FAERS Safety Report 4911937-9 (Version None)
Quarter: 2006Q1

REPORT INFORMATION
  Report Type: 
  Country: None (occurrence: None)
  Receive Date: 20060213
  Receipt Date: 20060213
  Transmission Date: 20060701
  Serious: No
  Sender: FDA-Public Use
  Company Number: None

PATIENT
  Age: 50 Year
  Sex: Male
  Weight: 83.9154 kg

DRUGS (1)
  1. LEVAQUIN [Suspect]
     Indication: SINUSITIS
     Dosage: 500MG   1X DAILY  PO
     Route: 048
     Dates: start: 20050929, end: 20050929

REACTIONS (13)
  - ANXIETY [None]
  - BRAIN NEOPLASM [None]
  - BURNING SENSATION [None]
  - EYE PAIN [None]
  - HOMICIDAL IDEATION [None]
  - HYPERHIDROSIS [None]
  - INSOMNIA [None]
  - MENTAL DISORDER [None]
  - PAIN OF SKIN [None]
  - PALPITATIONS [None]
  - RESTLESSNESS [None]
  - SUICIDAL IDEATION [None]
  - TREMOR [None]
